FAERS Safety Report 21159553 (Version 4)
Quarter: 2022Q3

REPORT INFORMATION
  Report Type: Spontaneous
  Country: US (occurrence: US)
  Receive Date: 20220802
  Receipt Date: 20220810
  Transmission Date: 20221027
  Serious: Yes (Other)
  Sender: FDA-Public Use
  Company Number: US-PFIZER INC-202200712294

PATIENT
  Age: 68 Year

DRUGS (7)
  1. ACCUPRIL [Suspect]
     Active Substance: QUINAPRIL HYDROCHLORIDE
     Indication: Blood pressure abnormal
     Dosage: 10 MG
  2. ALDACTONE [Suspect]
     Active Substance: SPIRONOLACTONE
     Dosage: UNK
  3. ALTACE [Suspect]
     Active Substance: RAMIPRIL
     Dosage: UNK
  4. DIFLUCAN [Suspect]
     Active Substance: FLUCONAZOLE
     Dosage: UNK
  5. PREMARIN [Suspect]
     Active Substance: ESTROGENS, CONJUGATED
     Dosage: UNK
  6. PREMARIN [Suspect]
     Active Substance: ESTROGENS, CONJUGATED
     Dosage: UNK
  7. QUINAPRIL [Suspect]
     Active Substance: QUINAPRIL
     Indication: Blood pressure measurement
     Dosage: UNK, 2X/DAY (30)

REACTIONS (1)
  - Lower limb fracture [Unknown]
